FAERS Safety Report 7762696-6 (Version None)
Quarter: 2011Q3

REPORT INFORMATION
  Report Type: 
  Country: None (occurrence: None)
  Receive Date: 20110920
  Receipt Date: 20110916
  Transmission Date: 20111222
  Serious: Yes (Other)
  Sender: FDA-Public Use
  Company Number: US-PFIZER INC-2011219719

PATIENT
  Sex: Female

DRUGS (1)
  1. SUTENT [Suspect]
     Indication: NEOPLASM MALIGNANT
     Dosage: 50 MG, 1X/DAY (FOR 4 WEEKS ON , THEN 2 WEEKS OFF)
     Route: 048
     Dates: start: 20110903

REACTIONS (1)
  - T-CELL LYMPHOMA [None]
